FAERS Safety Report 8885522 (Version 2)
Quarter: 2012Q4

REPORT INFORMATION
  Report Type: 
  Country: US (occurrence: US)
  Receive Date: 20121105
  Receipt Date: 20121128
  Transmission Date: 20130627
  Serious: Yes (Hospitalization)
  Sender: FDA-Public Use
  Company Number: US-PFIZER INC-2012274865

PATIENT
  Age: 72 Year
  Sex: Female
  Weight: 86 kg

DRUGS (5)
  1. LIPITOR [Suspect]
     Indication: BLOOD CHOLESTEROL ABNORMAL
     Dosage: 20 mg, daily
     Route: 048
  2. GLUCOTROL [Suspect]
     Indication: DIABETES
     Dosage: 2 DF, daily
     Route: 048
  3. NORVASC [Suspect]
     Indication: BLOOD PRESSURE ABNORMAL
     Dosage: UNK, daily
  4. ALDACTAZIDE [Suspect]
     Indication: DIURETIC THERAPY
     Dosage: UNK
  5. LISINOPRIL [Concomitant]
     Indication: BLOOD PRESSURE ABNORMAL
     Dosage: UNK

REACTIONS (3)
  - Chronic sinusitis [Recovered/Resolved]
  - Nasal obstruction [Recovered/Resolved]
  - Hypotension [Unknown]
